FAERS Safety Report 7300711-4 (Version None)
Quarter: 2011Q1

REPORT INFORMATION
  Report Type: 
  Country: None (occurrence: None)
  Receive Date: 20110103
  Receipt Date: 20100512
  Transmission Date: 20110831
  Serious: Yes (Hospitalization)
  Sender: FDA-Public Use
  Company Number: US-004470

PATIENT
  Age: 50 Year
  Sex: Male

DRUGS (2)
  1. PROHANCE [Suspect]
     Indication: NUCLEAR MAGNETIC RESONANCE IMAGING
     Dosage: 17ML ONCE INTRAVENOUS
     Route: 042
     Dates: start: 20100512, end: 20100512
  2. PROHANCE [Suspect]
     Indication: PAROTID GLAND ENLARGEMENT
     Dosage: 17ML ONCE INTRAVENOUS
     Route: 042
     Dates: start: 20100512, end: 20100512

REACTIONS (2)
  - WHEEZING [None]
  - FLUSHING [None]
